FAERS Safety Report 5122928-X (Version None)
Quarter: 2006Q4

REPORT INFORMATION
  Report Type: 
  Country: None (occurrence: None)
  Receive Date: 20061005
  Receipt Date: 20061005
  Transmission Date: 20070319
  Serious: Yes (Hospitalization, Other)
  Sender: FDA-Public Use
  Company Number: None

PATIENT
  Age: 26 Year
  Sex: Female
  Weight: 66.6788 kg

DRUGS (1)
  1. PHENTERMINE HCL [Suspect]
     Indication: METABOLIC DISORDER
     Dosage: 37.5 MG DAILY PO
     Route: 048
     Dates: start: 20060618, end: 20060808

REACTIONS (16)
  - ABDOMINAL PAIN UPPER [None]
  - ANXIETY [None]
  - CHEST PAIN [None]
  - DEHYDRATION [None]
  - DIZZINESS [None]
  - DRUG WITHDRAWAL SYNDROME [None]
  - DYSPNOEA [None]
  - ENERGY INCREASED [None]
  - FEAR [None]
  - FOOD CRAVING [None]
  - HYPERREFLEXIA [None]
  - IRRITABILITY [None]
  - PANIC ATTACK [None]
  - PARANOIA [None]
  - PERSONALITY CHANGE [None]
  - RESPIRATORY RATE INCREASED [None]
